FAERS Safety Report 24899021 (Version 1)
Quarter: 2025Q1

REPORT INFORMATION
  Report Type: Spontaneous
  Country: US (occurrence: US)
  Receive Date: 20250129
  Receipt Date: 20250129
  Transmission Date: 20250409
  Serious: Yes (Hospitalization)
  Sender: TEVA
  Company Number: US-TEVA-VS-3290161

PATIENT
  Sex: Female

DRUGS (1)
  1. CLONAZEPAM [Suspect]
     Active Substance: CLONAZEPAM
     Indication: Product used for unknown indication
     Route: 048

REACTIONS (8)
  - Sedation [Unknown]
  - Blood pressure decreased [Unknown]
  - Urinary tract infection [Unknown]
  - Blood potassium decreased [Unknown]
  - Dizziness [Unknown]
  - Recalled product administered [Unknown]
  - Recalled product [Unknown]
  - Suspected product quality issue [Unknown]
